FAERS Safety Report 16794268 (Version 3)
Quarter: 2019Q3

REPORT INFORMATION
  Report Type: Report from Study
  Country: IN (occurrence: IN)
  Receive Date: 20190911
  Receipt Date: 20190923
  Transmission Date: 20191005
  Serious: Yes (Death, Life-Threatening, Hospitalization)
  Sender: FDA-Public Use
  Company Number: PHHO2019IN008929

PATIENT
  Age: 63 Year

DRUGS (14)
  1. COMPARATOR CARBOPLATIN [Suspect]
     Active Substance: CARBOPLATIN
     Indication: NON-SMALL CELL LUNG CANCER
     Dosage: 620 MG, ONCE/SINGLE
     Route: 042
     Dates: start: 20190820
  2. LACTATED RINGERS SOLUTION [Concomitant]
     Active Substance: CALCIUM CHLORIDE\POTASSIUM CHLORIDE\SODIUM CHLORIDE\SODIUM LACTATE
     Indication: DIARRHOEA
     Dosage: 500 ML BOLUS THAN 100 ML/HOUR
     Route: 042
     Dates: start: 20190829, end: 20190830
  3. COMPARATOR PEMBROLIZUMAB [Suspect]
     Active Substance: PEMBROLIZUMAB
     Indication: NON-SMALL CELL LUNG CANCER
     Dosage: 200 MG, ONCE/SINGLE
     Route: 042
     Dates: start: 20190820
  4. COLSTIM [Concomitant]
     Indication: PROPHYLAXIS
     Dosage: 300 UG, ONCE/SINGLE
     Route: 058
     Dates: start: 20190829, end: 20190829
  5. SPORLAC [Concomitant]
     Indication: DIARRHOEA
     Dosage: THRICE A DAY
     Route: 048
     Dates: start: 20190829, end: 20190830
  6. COMPARATOR PACLITAXEL [Suspect]
     Active Substance: PACLITAXEL
     Indication: NON-SMALL CELL LUNG CANCER
     Dosage: 142 MG, QW
     Route: 042
     Dates: start: 20190820
  7. BLINDED NO TREATMENT RECEIVED [Suspect]
     Active Substance: INVESTIGATIONAL PRODUCT
     Indication: NON-SMALL CELL LUNG CANCER
     Dosage: NO TREATMENT
     Route: 065
  8. BLINDED PLACEBO [Suspect]
     Active Substance: INVESTIGATIONAL PRODUCT
     Indication: NON-SMALL CELL LUNG CANCER
     Dosage: NO TREATMENT
     Route: 065
  9. BLINDED ACZ885 [Suspect]
     Active Substance: CANAKINUMAB
     Indication: NON-SMALL CELL LUNG CANCER
     Dosage: NO TREATMENT
     Route: 065
  10. CIPROFLOXACIN. [Concomitant]
     Active Substance: CIPROFLOXACIN
     Indication: DIARRHOEA
     Dosage: 100 ML, BID
     Route: 042
     Dates: start: 20190829, end: 20190830
  11. METROGYL [Concomitant]
     Active Substance: METRONIDAZOLE
     Indication: DIARRHOEA
     Dosage: 100 ML, TID
     Route: 042
     Dates: start: 20190829, end: 20190830
  12. AMIKACIN. [Concomitant]
     Active Substance: AMIKACIN
     Indication: DIARRHOEA
     Dosage: 600 MG, QD
     Route: 042
     Dates: start: 20190829, end: 20190830
  13. LOPERAMIDE [Concomitant]
     Active Substance: LOPERAMIDE
     Indication: DIARRHOEA
     Dosage: PRN
     Route: 065
     Dates: start: 20190829, end: 20190829
  14. AUGMENTIN [Concomitant]
     Active Substance: AMOXICILLIN\CLAVULANATE POTASSIUM
     Indication: PLEURAL EFFUSION
     Dosage: UNK
     Route: 065
     Dates: start: 20190817, end: 20190819

REACTIONS (3)
  - Febrile neutropenia [Not Recovered/Not Resolved]
  - Cardio-respiratory arrest [Fatal]
  - Sepsis [Not Recovered/Not Resolved]

NARRATIVE: CASE EVENT DATE: 20190903
